FAERS Safety Report 9733409 (Version 2)
Quarter: 2013Q4

REPORT INFORMATION
  Report Type: Spontaneous
  Country: US (occurrence: US)
  Receive Date: 20131205
  Receipt Date: 20131205
  Transmission Date: 20140711
  Serious: Yes (Hospitalization, Disabling, Other)
  Sender: FDA-Public Use
  Company Number: US-009507513-1109USA01510

PATIENT
  Sex: Female
  Weight: 58.51 kg

DRUGS (11)
  1. FOSAMAX [Suspect]
     Indication: OSTEOPOROSIS
     Dosage: 10 MG, QD
     Route: 048
     Dates: start: 19991130, end: 20010428
  2. FOSAMAX [Suspect]
     Indication: OSTEOPENIA
     Dosage: 70 MG, UNK
     Route: 048
     Dates: start: 20000417, end: 20070412
  3. FOSAMAX [Suspect]
     Indication: OSTEOPOROSIS
     Dosage: 70 MG, UNK
     Route: 048
     Dates: start: 20060710, end: 20100611
  4. FOSAMAX [Suspect]
     Indication: OSTEOPENIA
  5. PREVACID [Concomitant]
  6. AXID [Concomitant]
  7. ACIPHEX [Concomitant]
     Dates: start: 20010404
  8. PREMPRO [Concomitant]
     Dosage: .625 MG, QD
     Dates: end: 20020730
  9. KEFLEX [Concomitant]
     Dosage: 500 MG, QID
     Dates: start: 20040204, end: 20040214
  10. FOSAMAX PLUS D [Suspect]
     Indication: OSTEOPOROSIS
     Route: 048
     Dates: start: 20051103
  11. FOSAMAX PLUS D [Suspect]
     Indication: OSTEOPENIA

REACTIONS (40)
  - Femur fracture [Unknown]
  - Femur fracture [Not Recovered/Not Resolved]
  - Tibia fracture [Unknown]
  - Osteoarthritis [Unknown]
  - Ligament sprain [Unknown]
  - Haemorrhagic anaemia [Unknown]
  - Leukocytosis [Recovering/Resolving]
  - Fall [Unknown]
  - Impaired self-care [Recovering/Resolving]
  - Osteoporosis [Not Recovered/Not Resolved]
  - Stress fracture [Not Recovered/Not Resolved]
  - Low turnover osteopathy [Not Recovered/Not Resolved]
  - Bursitis [Unknown]
  - Hypertension [Unknown]
  - Foot fracture [Recovering/Resolving]
  - Chest pain [Unknown]
  - Dyspnoea exertional [Unknown]
  - Inflammation [Unknown]
  - Osteoarthritis [Unknown]
  - Joint injury [Unknown]
  - Hypothyroidism [Unknown]
  - Plantar fasciitis [Unknown]
  - Urinary tract infection [Unknown]
  - Anxiety [Unknown]
  - Cervical radiculopathy [Unknown]
  - Rotator cuff syndrome [Unknown]
  - Upper respiratory tract infection [Unknown]
  - Fatigue [Unknown]
  - Hyperlipidaemia [Unknown]
  - Skin lesion [Unknown]
  - Urinary tract infection [Unknown]
  - Atelectasis [Recovered/Resolved]
  - Hypokalaemia [Recovered/Resolved]
  - Anaemia [Unknown]
  - Blood cholesterol increased [Unknown]
  - Fracture nonunion [Unknown]
  - Constipation [Unknown]
  - Oedema peripheral [Unknown]
  - Dizziness [Unknown]
  - Abdominal pain lower [Unknown]
